FAERS Safety Report 7467405-6 (Version None)
Quarter: 2011Q2

REPORT INFORMATION
  Report Type: 
  Country: None (occurrence: None)
  Receive Date: 20110509
  Receipt Date: 20101229
  Transmission Date: 20111010
  Serious: No
  Sender: FDA-Public Use
  Company Number: US-ALEXION-A201001655

PATIENT

DRUGS (7)
  1. SOLIRIS [Suspect]
     Indication: PAROXYSMAL NOCTURNAL HAEMOGLOBINURIA
     Dosage: UNK
     Route: 042
     Dates: start: 20090101
  2. CORTICOSTEROIDS [Concomitant]
     Route: 008
  3. GLUCOSAMINE [Concomitant]
  4. IBUPROFEN [Concomitant]
     Indication: PAIN
  5. LOVAZA [Concomitant]
  6. TYLENOL W/ CODEINE [Concomitant]
     Indication: PAIN
  7. NSAID'S [Suspect]
     Indication: BACK PAIN
     Route: 048

REACTIONS (1)
  - GASTRITIS [None]
